FAERS Safety Report 16045092 (Version 1)
Quarter: 2019Q1

REPORT INFORMATION
  Report Type: Report from Study
  Country: US (occurrence: US)
  Receive Date: 20190307
  Receipt Date: 20190307
  Transmission Date: 20190418
  Serious: Yes (Other)
  Sender: FDA-Public Use
  Company Number: PHEH2019US008384

PATIENT
  Sex: Female
  Weight: 48.1 kg

DRUGS (17)
  1. FEMARA [Suspect]
     Active Substance: LETROZOLE
     Indication: PRODUCT USED FOR UNKNOWN INDICATION
     Dosage: 1 DF (2.5 MG), UNK
     Route: 048
     Dates: start: 20180514
  2. LEVAQUIN [Suspect]
     Active Substance: LEVOFLOXACIN
     Indication: PRODUCT USED FOR UNKNOWN INDICATION
     Dosage: 1 DF (250 MG), QD
     Route: 048
     Dates: start: 20180828
  3. COMPAZINE [Suspect]
     Active Substance: PROCHLORPERAZINE MALEATE
     Indication: NAUSEA
     Dosage: 1 DF (10 MG), Q6H
     Route: 048
     Dates: start: 20180314
  4. FEMARA [Suspect]
     Active Substance: LETROZOLE
     Dosage: 1 DF (2.5 MG), UNK
     Route: 048
     Dates: start: 20190104
  5. IMODIUM A-D [Suspect]
     Active Substance: LOPERAMIDE HYDROCHLORIDE
     Indication: DIARRHOEA
     Dosage: 1 DF (1 TABLET (2 MG) 4 TIMES A DAY)
     Route: 048
     Dates: start: 20180314
  6. GLEEVEC [Suspect]
     Active Substance: IMATINIB MESYLATE
     Dosage: 3 DF (300 MG), QD
     Route: 048
     Dates: start: 20180626
  7. GLEEVEC [Suspect]
     Active Substance: IMATINIB MESYLATE
     Dosage: 3 DF (300 MG), QD
     Route: 048
     Dates: start: 20181113
  8. KLOR-CON [Suspect]
     Active Substance: POTASSIUM CHLORIDE
     Indication: PRODUCT USED FOR UNKNOWN INDICATION
     Dosage: 1 DF, QD
     Route: 048
     Dates: start: 20180314
  9. GLEEVEC [Suspect]
     Active Substance: IMATINIB MESYLATE
     Dosage: 3 DF (300 MG), QD
     Route: 048
     Dates: start: 20180821
  10. FEMARA [Suspect]
     Active Substance: LETROZOLE
     Dosage: 1 DF (2.5 MG), UNK
     Route: 048
     Dates: start: 20180718
  11. FEMARA [Suspect]
     Active Substance: LETROZOLE
     Dosage: 1 DF (2.5 MG), UNK
     Route: 048
     Dates: start: 20180912
  12. GLEEVEC [Suspect]
     Active Substance: IMATINIB MESYLATE
     Dosage: 3 DF (300 MG), QD
     Route: 048
     Dates: start: 20180918
  13. COMPAZINE [Suspect]
     Active Substance: PROCHLORPERAZINE MALEATE
     Indication: VOMITING
  14. GLEEVEC [Suspect]
     Active Substance: IMATINIB MESYLATE
     Indication: GASTROINTESTINAL STROMAL TUMOUR
     Dosage: 3 DF (300 MG), QD
     Route: 048
     Dates: start: 20180314
  15. GLEEVEC [Suspect]
     Active Substance: IMATINIB MESYLATE
     Dosage: 3 DF (300 MG), QD
     Route: 048
     Dates: start: 20180607
  16. GLEEVEC [Suspect]
     Active Substance: IMATINIB MESYLATE
     Dosage: 3 DF (300 MG), QD
     Route: 048
     Dates: start: 20180718
  17. GLEEVEC [Suspect]
     Active Substance: IMATINIB MESYLATE
     Dosage: 3 DF (300 MG), QD
     Route: 048
     Dates: start: 20181023

REACTIONS (20)
  - Arthralgia [Unknown]
  - Protein total decreased [Unknown]
  - Mean platelet volume decreased [Unknown]
  - Blood potassium decreased [Unknown]
  - Orbital oedema [Unknown]
  - Oedema [Recovered/Resolved]
  - Fluid retention [Recovering/Resolving]
  - White blood cell count decreased [Unknown]
  - Monocyte count decreased [Unknown]
  - Lymphocyte count decreased [Unknown]
  - Mean cell volume increased [Unknown]
  - Blood glucose increased [Unknown]
  - Oedema peripheral [Unknown]
  - Mean cell haemoglobin increased [Unknown]
  - Blood calcium decreased [Unknown]
  - Red blood cell count decreased [Unknown]
  - Haematocrit decreased [Unknown]
  - Pneumonia [Unknown]
  - Neutrophil count increased [Unknown]
  - Haemoglobin decreased [Unknown]
